FAERS Safety Report 9652050 (Version 3)
Quarter: 2014Q1

REPORT INFORMATION
  Report Type: Spontaneous
  Country: US (occurrence: US)
  Receive Date: 20131029
  Receipt Date: 20140310
  Transmission Date: 20141002
  Serious: Yes (Hospitalization)
  Sender: FDA-Public Use
  Company Number: US-BAXTER-2013BAX041591

PATIENT
  Sex: Female

DRUGS (4)
  1. DIANEAL LOW CALCIUM [Suspect]
     Indication: PERITONEAL DIALYSIS
     Route: 033
     Dates: start: 201301
  2. DIANEAL LOW CALCIUM [Suspect]
     Indication: PERITONEAL DIALYSIS
     Route: 033
     Dates: start: 201301
  3. DIANEAL LOW CALCIUM (ULTRABAG) [Suspect]
     Indication: PERITONEAL DIALYSIS
     Route: 033
     Dates: start: 201301
  4. DIANEAL LOW CALCIUM (ULTRABAG) [Suspect]
     Indication: PERITONEAL DIALYSIS
     Route: 033
     Dates: start: 201301

REACTIONS (9)
  - Gastrointestinal bacterial infection [Recovering/Resolving]
  - Urinary tract infection [Recovering/Resolving]
  - Blood potassium increased [Recovering/Resolving]
  - Weight increased [Recovering/Resolving]
  - Anaemia [Recovering/Resolving]
  - Abdominal pain upper [Recovered/Resolved]
  - Pyrexia [Not Recovered/Not Resolved]
  - Blood count abnormal [Unknown]
  - Blood potassium decreased [Unknown]
